FAERS Safety Report 14797537 (Version 1)
Quarter: 2018Q2

REPORT INFORMATION
  Report Type: Spontaneous
  Country: AT (occurrence: AT)
  Receive Date: 20180424
  Receipt Date: 20180424
  Transmission Date: 20180711
  Serious: Yes (Other)
  Sender: FDA-Public Use
  Company Number: AT-IPSEN BIOPHARMACEUTICALS, INC.-2018-05792

PATIENT
  Sex: Female

DRUGS (1)
  1. DYSPORT [Suspect]
     Active Substance: ABOBOTULINUMTOXINA
     Indication: SKIN COSMETIC PROCEDURE
     Dosage: NOT REPORTED
     Route: 065
     Dates: start: 2017, end: 2017

REACTIONS (2)
  - Muscular weakness [Not Recovered/Not Resolved]
  - Nerve injury [Unknown]

NARRATIVE: CASE EVENT DATE: 2018
